FAERS Safety Report 25643283 (Version 3)
Quarter: 2025Q3

REPORT INFORMATION
  Report Type: Report from Study
  Country: CA (occurrence: CA)
  Receive Date: 20250805
  Receipt Date: 20250908
  Transmission Date: 20251021
  Serious: Yes (Hospitalization, Other)
  Sender: ABBVIE
  Company Number: CA-JNJFOC-20250738493

PATIENT
  Age: 84 Year
  Sex: Female

DRUGS (2)
  1. IMBRUVICA [Suspect]
     Active Substance: IBRUTINIB
     Indication: Marginal zone lymphoma
     Route: 048
     Dates: start: 20250530, end: 20250723
  2. IMBRUVICA [Suspect]
     Active Substance: IBRUTINIB
     Indication: Marginal zone lymphoma
     Dosage: FIRST ADMIN DATE: 2025
     Route: 048
     Dates: end: 20250828

REACTIONS (2)
  - Leukopenia [Unknown]
  - Failure to thrive [Unknown]

NARRATIVE: CASE EVENT DATE: 20250723
